FAERS Safety Report 18128217 (Version 1)
Quarter: 2020Q3

REPORT INFORMATION
  Report Type: Spontaneous
  Country: US (occurrence: US)
  Receive Date: 20200810
  Receipt Date: 20200810
  Transmission Date: 20201103
  Serious: Yes (Other)
  Sender: FDA-Public Use
  Company Number: US-FERRINGPH-2020FE05055

PATIENT
  Age: 20 Year
  Sex: Female

DRUGS (1)
  1. STIMATE [Suspect]
     Active Substance: DESMOPRESSIN ACETATE
     Indication: HAEMORRHAGE
     Dosage: 2 PUFFS EACH NOSTRIL PRIOR TO PROCEDURES OR FOR BLEEDS
     Route: 045
     Dates: start: 2007

REACTIONS (2)
  - Seizure [Recovering/Resolving]
  - Out of specification product use [Not Recovered/Not Resolved]

NARRATIVE: CASE EVENT DATE: 201908
